FAERS Safety Report 21984464 (Version 2)
Quarter: 2023Q1

REPORT INFORMATION
  Report Type: Report from Study
  Country: US (occurrence: US)
  Receive Date: 20230213
  Receipt Date: 20230220
  Transmission Date: 20230418
  Serious: Yes (Hospitalization)
  Sender: FDA-Public Use
  Company Number: US-SA-SAC20230201001427

PATIENT
  Age: 67 Year
  Sex: Male

DRUGS (1)
  1. BELUMOSUDIL MESYLATE [Suspect]
     Active Substance: BELUMOSUDIL MESYLATE
     Indication: Acute myeloid leukaemia
     Dosage: 200 MG, QD
     Route: 048

REACTIONS (2)
  - Hospice care [Unknown]
  - Product use in unapproved indication [Unknown]
